FAERS Safety Report 8520011-4 (Version None)
Quarter: 2012Q3

REPORT INFORMATION
  Report Type: 
  Country: None (occurrence: None)
  Receive Date: 20120719
  Receipt Date: 20120717
  Transmission Date: 20120928
  Serious: No
  Sender: FDA-Public Use
  Company Number: US-PFIZER INC-2012173095

PATIENT
  Sex: Male
  Weight: 102 kg

DRUGS (5)
  1. MOTRIN IB [Suspect]
     Indication: HEADACHE
     Dosage: 600 MG EVERY 8 HOURS
     Dates: start: 20120101, end: 20120101
  2. EXCEDRIN (MIGRAINE) [Suspect]
     Indication: HEADACHE
     Dosage: 1000 MG, EVERY 8 HOURS
     Dates: start: 20120101, end: 20120101
  3. FISH OIL [Concomitant]
     Indication: BLOOD TRIGLYCERIDES INCREASED
     Dosage: UNK
  4. VENLAFAXINE HCL [Suspect]
     Indication: AFFECTIVE DISORDER
     Dosage: 150 MG, DAILY
     Dates: start: 20120101, end: 20120301
  5. VENLAFAXINE HCL [Suspect]
     Indication: BIPOLAR DISORDER

REACTIONS (2)
  - DRUG INEFFECTIVE [None]
  - HEADACHE [None]
